FAERS Safety Report 24012890 (Version 2)
Quarter: 2024Q3

REPORT INFORMATION
  Report Type: Report from Study
  Country: JP (occurrence: JP)
  Receive Date: 20240626
  Receipt Date: 20240715
  Transmission Date: 20241016
  Serious: Yes (Hospitalization)
  Sender: JOHNSON AND JOHNSON
  Company Number: JP-JNJFOC-20240661492

PATIENT
  Age: 68 Year
  Sex: Male

DRUGS (4)
  1. ZYTIGA [Suspect]
     Active Substance: ABIRATERONE ACETATE
     Indication: Hormone-dependent prostate cancer
     Route: 048
     Dates: start: 20210201, end: 20240613
  2. ZYTIGA [Suspect]
     Active Substance: ABIRATERONE ACETATE
     Route: 048
     Dates: start: 20240708
  3. PREDNISOLONE [Concomitant]
     Active Substance: PREDNISOLONE
     Indication: Hormone-dependent prostate cancer
     Route: 048
     Dates: start: 20210201, end: 20240612
  4. PREDNISOLONE [Concomitant]
     Active Substance: PREDNISOLONE
     Route: 048
     Dates: start: 20240613, end: 20240616

REACTIONS (3)
  - COVID-19 pneumonia [Recovering/Resolving]
  - Hypokalaemia [Unknown]
  - Acute kidney injury [Unknown]

NARRATIVE: CASE EVENT DATE: 20240612
